FAERS Safety Report 6652531-1 (Version None)
Quarter: 2010Q1

REPORT INFORMATION
  Report Type: 
  Country: None (occurrence: None)
  Receive Date: 20100325
  Receipt Date: 20100311
  Transmission Date: 20100710
  Serious: Yes (Hospitalization, Other)
  Sender: FDA-Public Use
  Company Number: US-MYLANLABS-2010S1004058

PATIENT
  Age: 37 Year
  Sex: Female

DRUGS (4)
  1. CYCLOPHOSPHAMIDE [Suspect]
     Indication: BREAST CANCER STAGE III
     Route: 065
  2. DOXORUBICIN HCL [Suspect]
     Indication: BREAST CANCER STAGE III
     Route: 065
  3. PACLITAXEL [Suspect]
     Indication: BREAST CANCER STAGE III
     Route: 065
  4. CAPECITABINE [Suspect]
     Indication: BREAST CANCER STAGE III
     Route: 065

REACTIONS (1)
  - ACUTE MYELOMONOCYTIC LEUKAEMIA [None]
